FAERS Safety Report 17000823 (Version 1)
Quarter: 2019Q4

REPORT INFORMATION
  Report Type: Spontaneous
  Country: US (occurrence: US)
  Receive Date: 20191106
  Receipt Date: 20191106
  Transmission Date: 20200122
  Serious: No
  Sender: FDA-Public Use
  Company Number: US-GILEAD-2019-0436269

PATIENT
  Age: 67 Year
  Sex: Female

DRUGS (3)
  1. RANEXA [Suspect]
     Active Substance: RANOLAZINE
     Indication: PRODUCT USED FOR UNKNOWN INDICATION
     Dosage: 1000 MG, BID
     Route: 065
  2. RANEXA [Suspect]
     Active Substance: RANOLAZINE
     Dosage: 1000 MG, QD
     Route: 065
  3. RANEXA [Suspect]
     Active Substance: RANOLAZINE
     Dosage: 500 MG, BID
     Route: 065

REACTIONS (5)
  - Stress [Unknown]
  - Asthenia [Unknown]
  - Feeling abnormal [Unknown]
  - Dizziness [Unknown]
  - Weight decreased [Unknown]
